FAERS Safety Report 4604240-8 (Version None)
Quarter: 2005Q1

REPORT INFORMATION
  Report Type: 
  Country: None (occurrence: None)
  Receive Date: 20050308
  Receipt Date: 20050308
  Transmission Date: 20050727
  Serious: Yes (Life-Threatening, Hospitalization)
  Sender: FDA-Public Use
  Company Number: None

PATIENT
  Age: 84 Year
  Sex: Female
  Weight: 43.2 kg

DRUGS (4)
  1. GLIPIZIDE ER [Suspect]
     Indication: DIABETES MELLITUS
     Dosage: X 5 MG PO QD
     Route: 048
  2. MULTI-VITAMIN [Concomitant]
  3. LASIX [Concomitant]
  4. ASPIRIN [Concomitant]

REACTIONS (6)
  - BLOOD GLUCOSE DECREASED [None]
  - CARDIAC FAILURE CONGESTIVE [None]
  - CONFUSIONAL STATE [None]
  - HYPERHIDROSIS [None]
  - LOSS OF CONSCIOUSNESS [None]
  - PNEUMONIA [None]
